FAERS Safety Report 6445137-0 (Version None)
Quarter: 2009Q4

REPORT INFORMATION
  Report Type: 
  Country: None (occurrence: None)
  Receive Date: 20091110
  Receipt Date: 20090824
  Transmission Date: 20100525
  Serious: No
  Sender: FDA-Public Use
  Company Number: 1000008410

PATIENT
  Age: 55 Year
  Sex: Female

DRUGS (11)
  1. SAVELLA [Suspect]
     Indication: FIBROMYALGIA
     Dosage: 12.5 MG (12.5 MG, 1 IN 1 D), ORAL : 25 MG (12.5 MG, 2 IN 1 D), ORAL : 50 MG (25 MG, 2 IN 1 D), ORAL
     Route: 048
     Dates: start: 20090818, end: 20090818
  2. SAVELLA [Suspect]
     Indication: FIBROMYALGIA
     Dosage: 12.5 MG (12.5 MG, 1 IN 1 D), ORAL : 25 MG (12.5 MG, 2 IN 1 D), ORAL : 50 MG (25 MG, 2 IN 1 D), ORAL
     Route: 048
     Dates: start: 20090819, end: 20090820
  3. SAVELLA [Suspect]
     Indication: FIBROMYALGIA
     Dosage: 12.5 MG (12.5 MG, 1 IN 1 D), ORAL : 25 MG (12.5 MG, 2 IN 1 D), ORAL : 50 MG (25 MG, 2 IN 1 D), ORAL
     Route: 048
     Dates: start: 20090821
  4. LEVOTHYROXINE SODIUM [Concomitant]
  5. TRIAMTERENE [Concomitant]
  6. XANAX [Concomitant]
  7. LORTAB [Concomitant]
  8. CLARITIN-D [Concomitant]
  9. FOLIC ACID [Concomitant]
  10. VITAMINS [Concomitant]
  11. DOXYCYCLINE [Concomitant]

REACTIONS (4)
  - AGITATION [None]
  - ANGER [None]
  - CRYING [None]
  - IRRITABILITY [None]
